FAERS Safety Report 15853842 (Version 1)
Quarter: 2019Q1

REPORT INFORMATION
  Report Type: Spontaneous
  Country: US (occurrence: US)
  Receive Date: 20190121
  Receipt Date: 20190121
  Transmission Date: 20190417
  Serious: Yes (Death)
  Sender: FDA-Public Use
  Company Number: None

PATIENT
  Sex: Male

DRUGS (15)
  1. ZYTIGA [Suspect]
     Active Substance: ABIRATERONE ACETATE
     Indication: PROSTATE CANCER
     Route: 048
  2. ASPIRIN LOW TABLETS 81MG EC [Concomitant]
  3. QUINAPRIL TABLETS 40MG [Concomitant]
  4. DOK CAPSULES 100MG [Concomitant]
  5. ADALAT CC TABLETS 90MG ER [Concomitant]
  6. HCTZ TABLETS 12.5MG [Concomitant]
  7. GLIMEPIRIDE TABLETS 4MG [Concomitant]
     Active Substance: GLIMEPIRIDE
  8. PREDNISONE TABLETS 5MG [Concomitant]
     Active Substance: PREDNISONE
  9. METFORMIN [Concomitant]
     Active Substance: METFORMIN HYDROCHLORIDE
  10. ATORVASTATIN TABLETS 40MG [Concomitant]
  11. PANTOPRAZOLE TABLETS 40MG [Concomitant]
  12. CLOPIDOGREL TABLETS 75MG [Concomitant]
  13. POTASSIUM CHLORIDE TABLETS 20MEQ ER [Concomitant]
  14. DOXAZOSIN TABLETS 2MG [Concomitant]
  15. TYLENOL TABLETS 500MG RR [Concomitant]

REACTIONS (1)
  - Death [None]
